FAERS Safety Report 23121654 (Version 2)
Quarter: 2024Q1

REPORT INFORMATION
  Report Type: Report from Study
  Country: GB (occurrence: GB)
  Receive Date: 20231029
  Receipt Date: 20240221
  Transmission Date: 20240410
  Serious: Yes (Other)
  Sender: FDA-Public Use
  Company Number: GB-002147023-NVSC2023GB047870

PATIENT
  Age: 63 Year
  Sex: Female

DRUGS (2)
  1. KISQALI [Suspect]
     Active Substance: RIBOCICLIB
     Indication: Product used for unknown indication
     Dosage: UNK
     Route: 065
  2. KISQALI [Suspect]
     Active Substance: RIBOCICLIB
     Dosage: UNK (FIRST LINE + AI)
     Route: 065
     Dates: start: 202301

REACTIONS (10)
  - Thrombosis [Unknown]
  - Abnormal dreams [Unknown]
  - Muscular weakness [Unknown]
  - Arthralgia [Unknown]
  - Depressed mood [Unknown]
  - Eye irritation [Unknown]
  - Headache [Unknown]
  - Back pain [Unknown]
  - Cough [Unknown]
  - Urinary tract infection [Unknown]
